FAERS Safety Report 8738019 (Version 2)
Quarter: 2013Q2

REPORT INFORMATION
  Report Type: Spontaneous
  Country: US (occurrence: US)
  Receive Date: 20120823
  Receipt Date: 20130411
  Transmission Date: 20140414
  Serious: No
  Sender: FDA-Public Use
  Company Number: US-BIOGENIDEC-2012BI032656

PATIENT
  Sex: Male

DRUGS (7)
  1. AVONEX [Suspect]
     Indication: MULTIPLE SCLEROSIS
     Route: 030
     Dates: start: 20100908
  2. AVONEX [Suspect]
     Indication: MULTIPLE SCLEROSIS
     Route: 030
  3. SINGULAIR [Concomitant]
     Route: 048
  4. ALLEGRA-D [Concomitant]
     Route: 048
  5. ADVAIR DISKUS [Concomitant]
  6. PROAIR HFA [Concomitant]
  7. ASACOL [Concomitant]
     Route: 048

REACTIONS (1)
  - Asthma [Unknown]
